FAERS Safety Report 18309531 (Version 2)
Quarter: 2020Q4

REPORT INFORMATION
  Report Type: Spontaneous
  Country: US (occurrence: US)
  Receive Date: 20200924
  Receipt Date: 20201021
  Transmission Date: 20210113
  Serious: Yes (Hospitalization)
  Sender: FDA-Public Use
  Company Number: US-TEVA-2020-US-1829846

PATIENT
  Age: 37 Year
  Sex: Male

DRUGS (6)
  1. CAPTOPRIL. [Suspect]
     Active Substance: CAPTOPRIL
     Indication: SUBACUTE KIDNEY INJURY
  2. PREDNISONE. [Suspect]
     Active Substance: PREDNISONE
     Indication: SYSTEMIC SCLERODERMA
     Dosage: 60MG
     Route: 048
  3. BEVACIZUMAB. [Suspect]
     Active Substance: BEVACIZUMAB
     Indication: RETINAL EXUDATES
     Dosage: ON TWO OCCASIONS
     Route: 050
  4. CAPTOPRIL. [Suspect]
     Active Substance: CAPTOPRIL
     Indication: HYPERTENSION
     Route: 065
  5. ASPIRIN. [Suspect]
     Active Substance: ASPIRIN
     Indication: HYPERTENSION
     Dosage: 81 MG
     Route: 065
  6. ASPIRIN. [Suspect]
     Active Substance: ASPIRIN
     Indication: SUBACUTE KIDNEY INJURY

REACTIONS (7)
  - Thrombotic microangiopathy [Unknown]
  - Hypertension [Unknown]
  - Drug ineffective [Unknown]
  - Scleroderma renal crisis [Unknown]
  - Subacute kidney injury [Unknown]
  - Vision blurred [Unknown]
  - Retinal exudates [Unknown]
